FAERS Safety Report 16291356 (Version 3)
Quarter: 2019Q3

REPORT INFORMATION
  Report Type: Report from Study
  Country: US (occurrence: US)
  Receive Date: 20190509
  Receipt Date: 20190715
  Transmission Date: 20191004
  Serious: Yes (Death, Hospitalization, Other)
  Sender: FDA-Public Use
  Company Number: US-JNJFOC-20190506616

PATIENT
  Age: 78 Year
  Sex: Male

DRUGS (1)
  1. IMBRUVICA [Suspect]
     Active Substance: IBRUTINIB
     Indication: LYMPHOCYTIC LEUKAEMIA
     Route: 048
     Dates: start: 20190417, end: 20190501

REACTIONS (6)
  - Hallucination [Not Recovered/Not Resolved]
  - Aspiration [Fatal]
  - Gastrointestinal haemorrhage [Not Recovered/Not Resolved]
  - Thrombocytopenia [Fatal]
  - Disease progression [Fatal]
  - Anaemia [Not Recovered/Not Resolved]

NARRATIVE: CASE EVENT DATE: 20190426
